FAERS Safety Report 5755903-2 (Version None)
Quarter: 2008Q2

REPORT INFORMATION
  Report Type: 
  Country: None (occurrence: None)
  Receive Date: 20080528
  Receipt Date: 20080515
  Transmission Date: 20081010
  Serious: Yes (Hospitalization)
  Sender: FDA-Public Use
  Company Number: 07-002466

PATIENT
  Age: 66 Year
  Sex: Male

DRUGS (1)
  1. TACLONEX [Suspect]
     Indication: PSORIASIS
     Dosage: 0.0005/064%, QD, TOPICAL
     Route: 061
     Dates: start: 20071110, end: 20071114

REACTIONS (1)
  - ERYTHRODERMIC PSORIASIS [None]
